FAERS Safety Report 7551187-3 (Version None)
Quarter: 2011Q2

REPORT INFORMATION
  Report Type: 
  Country: None (occurrence: None)
  Receive Date: 20110609
  Receipt Date: 20110524
  Transmission Date: 20111010
  Serious: Yes (Death, Hospitalization, Other)
  Sender: FDA-Public Use
  Company Number: 2011MA006451

PATIENT
  Age: 56 Year
  Sex: Female

DRUGS (3)
  1. FLUOROURACIL [Concomitant]
  2. EPIRUBICIN HYDROCHLORIDE [Suspect]
     Indication: BREAST CANCER
     Dosage: 80 MG
     Dates: start: 20090501
  3. CYCLOPHOSPHAMIDE [Concomitant]

REACTIONS (23)
  - SKIN LESION [None]
  - PAIN IN EXTREMITY [None]
  - PRURITUS [None]
  - ALOPECIA [None]
  - THERAPEUTIC RESPONSE DECREASED [None]
  - NEUTROPENIA [None]
  - OSTEOCHONDROSIS [None]
  - RENAL IMPAIRMENT [None]
  - ANAEMIA [None]
  - THROMBOCYTOPENIA [None]
  - METASTASES TO LUNG [None]
  - PERICARDIAL EFFUSION [None]
  - REFUSAL OF TREATMENT BY PATIENT [None]
  - CELLULITIS [None]
  - HEPATIC FUNCTION ABNORMAL [None]
  - HAEMOGLOBIN DECREASED [None]
  - BACTERAEMIA [None]
  - BLOOD FIBRINOGEN DECREASED [None]
  - BACK PAIN [None]
  - URINARY TRACT PAIN [None]
  - DYSPNOEA [None]
  - COAGULOPATHY [None]
  - HEPATIC STEATOSIS [None]
